FAERS Safety Report 7963693 (Version 6)
Quarter: 2016Q3

REPORT INFORMATION
  Report Type: Report from Study
  Country: US (occurrence: US)
  Receive Date: 20110527
  Receipt Date: 20160822
  Transmission Date: 20161109
  Serious: Yes (Death, Hospitalization, Other)
  Sender: FDA-Public Use
  Company Number: US-ASTELLAS-2011US002380

PATIENT
  Age: 58 Year
  Sex: Female

DRUGS (3)
  1. GEMCITABINE [Suspect]
     Active Substance: GEMCITABINE\GEMCITABINE HYDROCHLORIDE
     Indication: ENDOMETRIAL CANCER
     Dosage: 750 MG/M2, CYCLIC, ON DAYS 1, 8.15
     Route: 042
     Dates: start: 20110415, end: 20110429
  2. ERLOTINIB [Suspect]
     Active Substance: ERLOTINIB
     Indication: ENDOMETRIAL CANCER
     Route: 048
     Dates: start: 20110415, end: 20110513
  3. VISMODEGIB [Suspect]
     Active Substance: VISMODEGIB
     Indication: ENDOMETRIAL CANCER
     Route: 048
     Dates: start: 20110415, end: 20110513

REACTIONS (8)
  - Embolism [Unknown]
  - Blood alkaline phosphatase increased [Unknown]
  - Hyponatraemia [Unknown]
  - Malignant neoplasm progression [Fatal]
  - Neoplasm [Fatal]
  - Small intestinal obstruction [Unknown]
  - Off label use [Unknown]
  - Embolism [Unknown]

NARRATIVE: CASE EVENT DATE: 20110516
